FAERS Safety Report 4616880-0 (Version None)
Quarter: 2005Q1

REPORT INFORMATION
  Report Type: 
  Country: None (occurrence: None)
  Receive Date: 20050321
  Receipt Date: 20050307
  Transmission Date: 20050727
  Serious: Yes (Death)
  Sender: FDA-Public Use
  Company Number: 2005040397

PATIENT
  Age: 84 Year
  Sex: Male

DRUGS (2)
  1. CELEBREX [Suspect]
     Indication: OSTEOARTHRITIS
     Dosage: 200 MG 1 IN 1 D
  2. PENTOXIFYLLINE [Concomitant]

REACTIONS (1)
  - MYOCARDIAL INFARCTION [None]
